FAERS Safety Report 9230285 (Version 3)
Quarter: 2013Q3

REPORT INFORMATION
  Report Type: Spontaneous
  Country: US (occurrence: None)
  Receive Date: 20130411
  Receipt Date: 20130801
  Transmission Date: 20140515
  Serious: Yes (Death)
  Sender: FDA-Public Use
  Company Number: JPI-P-030960

PATIENT
  Age: 40 Year
  Sex: Female

DRUGS (15)
  1. XYREM (500 MILLIGRAM/MILLILITERS, SOLUTION) (SODIUM OXYBATE) [Suspect]
     Indication: NARCOLEPSY
     Route: 048
     Dates: start: 20120525
  2. XYREM (500 MILLIGRAM/MILLILITERS, SOLUTION) (SODIUM OXYBATE) [Suspect]
     Indication: DEPRESSION
     Route: 048
     Dates: start: 20120525
  3. XYREM (500 MILLIGRAM/MILLILITERS, SOLUTION) (SODIUM OXYBATE) [Suspect]
     Indication: HYPERTENSION
     Route: 048
     Dates: start: 20120525
  4. XYREM (500 MILLIGRAM/MILLILITERS, SOLUTION) (SODIUM OXYBATE) [Suspect]
     Indication: ANAEMIA
     Route: 048
     Dates: start: 20120525
  5. XYREM (500 MILLIGRAM/MILLILITERS, SOLUTION) (SODIUM OXYBATE) [Suspect]
     Indication: GASTROOESOPHAGEAL REFLUX DISEASE
     Route: 048
     Dates: start: 20120525
  6. XYREM (500 MILLIGRAM/MILLILITERS, SOLUTION) (SODIUM OXYBATE) [Suspect]
     Indication: ARTHRITIS
     Route: 048
     Dates: start: 20120525
  7. XYREM (500 MILLIGRAM/MILLILITERS, SOLUTION) (SODIUM OXYBATE) [Suspect]
     Indication: BRONCHITIS
     Route: 048
     Dates: start: 20120525
  8. HYDROCHLOROTHIAZIDE [Concomitant]
  9. IBUPROFEN [Concomitant]
  10. DICLOFENAC [Concomitant]
  11. ALBUTEROL [Concomitant]
  12. CITALOPRAM [Concomitant]
  13. FLUCONAZOLE [Concomitant]
  14. OMEPRAZOLE [Concomitant]
  15. HYDROCODONE/ACETAMINOPHEN [Concomitant]

REACTIONS (1)
  - Death [None]
